FAERS Safety Report 4731180-6 (Version None)
Quarter: 2005Q3

REPORT INFORMATION
  Report Type: 
  Country: None (occurrence: None)
  Receive Date: 20050728
  Receipt Date: 20050726
  Transmission Date: 20060218
  Serious: Yes (Hospitalization)
  Sender: FDA-Public Use
  Company Number: 200510670BVD

PATIENT
  Age: 78 Year
  Sex: Male
  Weight: 69 kg

DRUGS (2)
  1. CIPROFLOXACIN [Suspect]
     Indication: UROSEPSIS
     Dosage: BID, INTRAVENOUS; SEE IMAGE
     Route: 042
     Dates: start: 20050702, end: 20050709
  2. CIPROFLOXACIN [Suspect]
     Indication: UROSEPSIS
     Dosage: BID, INTRAVENOUS; SEE IMAGE
     Route: 042

REACTIONS (1)
  - ARRHYTHMIA [None]
